FAERS Safety Report 15037375 (Version 1)
Quarter: 2018Q2

REPORT INFORMATION
  Report Type: Report from Study
  Country: ES (occurrence: ES)
  Receive Date: 20180620
  Receipt Date: 20180620
  Transmission Date: 20180711
  Serious: Yes (Life-Threatening, Hospitalization)
  Sender: FDA-Public Use
  Company Number: ES-TEVA-2018-ES-911376

PATIENT
  Age: 58 Year
  Sex: Male

DRUGS (5)
  1. FLUOXETINA (2331A) [Suspect]
     Active Substance: FLUOXETINE HYDROCHLORIDE
     Indication: DEPRESSION
     Dosage: 30 MILLIGRAM DAILY;
     Route: 048
     Dates: start: 20170124
  2. NAPROXENO (2002A) [Suspect]
     Active Substance: NAPROXEN
     Indication: PAIN
     Dosage: 500 MILLIGRAM DAILY;
     Route: 048
     Dates: start: 20170916, end: 20170916
  3. VENLAFAXINA (2664A) [Suspect]
     Active Substance: VENLAFAXINE HYDROCHLORIDE
     Indication: DEPRESSION
     Dosage: 75 MILLIGRAM DAILY;
     Route: 048
     Dates: start: 20170124
  4. ZARELIS RETARD 75 MG COMPRIMIDOS DE LIBERACION PROLONGADA , 30 COMPRIM [Concomitant]
     Active Substance: VENLAFAXINE HYDROCHLORIDE
     Indication: DEPRESSION
     Dosage: 375 MILLIGRAM DAILY;
     Route: 048
     Dates: start: 20150914, end: 20170923
  5. HIDROCLOROTIAZIDA (1343A) [Concomitant]
     Active Substance: HYDROCHLOROTHIAZIDE
     Indication: HYPERTENSION
     Dosage: 25 MILLIGRAM DAILY;
     Route: 048
     Dates: start: 20150522, end: 20170918

REACTIONS (1)
  - Upper gastrointestinal haemorrhage [Recovered/Resolved]

NARRATIVE: CASE EVENT DATE: 20170918
